FAERS Safety Report 21811350 (Version 2)
Quarter: 2023Q1

REPORT INFORMATION
  Report Type: Report from Study
  Country: ZA (occurrence: None)
  Receive Date: 20230103
  Receipt Date: 20230111
  Transmission Date: 20230417
  Serious: Yes (Hospitalization)
  Sender: FDA-Public Use
  Company Number: ZA-ROCHE-3252629

PATIENT
  Age: 73 Year
  Sex: Female
  Weight: 68.2 kg

DRUGS (5)
  1. PERTUZUMAB [Suspect]
     Active Substance: PERTUZUMAB
     Indication: HER2 positive breast cancer
     Dosage: DOSE LAST STUDY DRUG ADMIN PRIOR SAE 420, START DATE OF MOST RECENT DOSE OF STUDY DRUG PRIOR TO AE 1
     Route: 058
     Dates: start: 20221122
  2. TRASTUZUMAB [Suspect]
     Active Substance: TRASTUZUMAB
     Indication: HER2 positive breast cancer
     Dosage: DOSE LAST STUDY DRUG ADMIN PRIOR AE 420 MG,  DOSE LAST STUDY DRUG ADMIN PRIOR SAE 420 MG, START DATE
     Route: 041
     Dates: start: 20221122
  3. DOCETAXEL [Suspect]
     Active Substance: DOCETAXEL
     Indication: HER2 positive breast cancer
     Dosage: DOSE LAST STUDY DRUG ADMIN PRIOR AE 120 MG, DOSE LAST STUDY DRUG ADMIN PRIOR SAE 120 MG?START DATE O
     Route: 042
     Dates: start: 20221122
  4. CARBOPLATIN [Suspect]
     Active Substance: CARBOPLATIN
     Indication: HER2 positive breast cancer
     Dosage: DOSE LAST STUDY DRUG ADMIN PRIOR AE 375 MG, DOSE LAST STUDY DRUG ADMIN PRIOR SAE 375 MG?START DATE O
     Route: 042
     Dates: start: 20221122
  5. PERINDOPRIL ERBUMINE [Concomitant]
     Active Substance: PERINDOPRIL ERBUMINE
     Route: 048
     Dates: start: 2002, end: 20221213

REACTIONS (1)
  - Ankle fracture [Not Recovered/Not Resolved]

NARRATIVE: CASE EVENT DATE: 20221227
